FAERS Safety Report 6766190-0 (Version None)
Quarter: 2010Q2

REPORT INFORMATION
  Report Type: 
  Country: None (occurrence: None)
  Receive Date: 20100611
  Receipt Date: 20100601
  Transmission Date: 20101027
  Serious: Yes (Hospitalization)
  Sender: FDA-Public Use
  Company Number: FR-PFIZER INC-2010068279

PATIENT
  Age: 49 Year
  Sex: Male

DRUGS (9)
  1. LYRICA [Suspect]
     Dosage: 25 MG, 1X/DAY
     Route: 048
     Dates: end: 20090419
  2. CONTRAMAL [Suspect]
     Indication: PROCEDURAL PAIN
     Dosage: UNK
     Route: 048
     Dates: start: 20090416, end: 20090505
  3. TRUVADA [Concomitant]
     Dosage: 1 DF PER DAY
     Route: 048
  4. KARDEGIC [Concomitant]
     Route: 048
  5. CRESTOR [Concomitant]
     Dosage: UNK
     Route: 048
  6. LOVENOX [Concomitant]
     Dosage: 4000 UI/ PER DAY
     Route: 058
  7. NEXIUM [Concomitant]
  8. ISENTRESS [Concomitant]
     Dosage: 2 DF PER DAY
     Route: 048
  9. VENOFER [Concomitant]
     Dosage: 2 DF PER DAY
     Route: 042

REACTIONS (1)
  - CHOLESTASIS [None]
